FAERS Safety Report 18446866 (Version 1)
Quarter: 2020Q4

REPORT INFORMATION
  Report Type: Spontaneous
  Country: FR (occurrence: FR)
  Receive Date: 20201030
  Receipt Date: 20201030
  Transmission Date: 20210114
  Serious: Yes (Other)
  Sender: FDA-Public Use
  Company Number: FR-009507513-2010FRA010583

PATIENT
  Age: 85 Year
  Sex: Male
  Weight: 70 kg

DRUGS (1)
  1. JANUMET [Suspect]
     Active Substance: METFORMIN HYDROCHLORIDE\SITAGLIPTIN PHOSPHATE
     Indication: TYPE 2 DIABETES MELLITUS
     Dosage: ONE TABLET IN MORNING AND ONE TABLET IN THE
     Route: 048
     Dates: start: 20160523, end: 20200912

REACTIONS (2)
  - Vitamin B12 deficiency [Recovering/Resolving]
  - Folate deficiency [Recovering/Resolving]

NARRATIVE: CASE EVENT DATE: 20200915
